FAERS Safety Report 6113722-1 (Version None)
Quarter: 2009Q1

REPORT INFORMATION
  Report Type: 
  Country: None (occurrence: None)
  Receive Date: 20090312
  Receipt Date: 20090305
  Transmission Date: 20090719
  Serious: Yes (Other)
  Sender: FDA-Public Use
  Company Number: US-GILEAD-2009-0020178

PATIENT
  Sex: Male

DRUGS (7)
  1. ATRIPLA [Suspect]
     Indication: HIV INFECTION
     Dates: start: 20080807, end: 20090205
  2. AZITHROMYCIN [Concomitant]
  3. CLARITIN [Concomitant]
  4. ACYCLOVIR [Concomitant]
  5. SEPTRA [Concomitant]
  6. LISINOPRIL [Concomitant]
  7. MULTI-VITAMIN [Concomitant]

REACTIONS (2)
  - GENOTYPE DRUG RESISTANCE TEST POSITIVE [None]
  - TREATMENT FAILURE [None]
